FAERS Safety Report 5292976-8 (Version None)
Quarter: 2007Q2

REPORT INFORMATION
  Report Type: 
  Country: None (occurrence: None)
  Receive Date: 20070411
  Receipt Date: 20070323
  Transmission Date: 20071010
  Serious: Yes (Hospitalization)
  Sender: FDA-Public Use
  Company Number: GB-JNJFOC-20070305744

PATIENT
  Age: 37 Year
  Sex: Female
  Weight: 94 kg

DRUGS (8)
  1. INFLIXIMAB [Suspect]
     Indication: RHEUMATOID ARTHRITIS
     Route: 042
  2. METHOTREXATE [Suspect]
     Indication: IMMUNOSUPPRESSION
  3. AMPICILLIN [Concomitant]
  4. DICLOFENAC SODIUM [Concomitant]
  5. FLOXACILLIN SODIUM [Concomitant]
  6. FOLIC ACID [Concomitant]
  7. TRAMADOL HCL [Concomitant]
  8. ORAL CONTRACEPTIVE [Concomitant]

REACTIONS (2)
  - INDURATION [None]
  - STAPHYLOCOCCAL ABSCESS [None]
